FAERS Safety Report 14772605 (Version 1)
Quarter: 2018Q2

REPORT INFORMATION
  Report Type: Report from Study
  Country: RO (occurrence: RO)
  Receive Date: 20180418
  Receipt Date: 20180418
  Transmission Date: 20180711
  Serious: Yes (Other)
  Sender: FDA-Public Use
  Company Number: RO-ROCHE-2108389

PATIENT

DRUGS (3)
  1. RIBAVIRIN. [Suspect]
     Active Substance: RIBAVIRIN
     Indication: HEPATITIS C
     Route: 065
  2. DASABUVIR [Suspect]
     Active Substance: DASABUVIR
     Indication: HEPATITIS C
     Route: 065
  3. OMBITASVIR/PARITAPREVIR/RITONAVIR [Suspect]
     Active Substance: OMBITASVIR\PARITAPREVIR\RITONAVIR
     Indication: HEPATITIS C
     Route: 065

REACTIONS (13)
  - Oesophageal haemorrhage [Unknown]
  - Jaundice [Recovered/Resolved]
  - Anaemia [Unknown]
  - Renal impairment [Unknown]
  - Insomnia [Unknown]
  - Diarrhoea [Unknown]
  - Ascites [Unknown]
  - Depression [Unknown]
  - Blood glucose increased [Unknown]
  - Encephalopathy [Unknown]
  - Headache [Unknown]
  - International normalised ratio increased [Unknown]
  - Asthenia [Unknown]
